FAERS Safety Report 6410882-X (Version None)
Quarter: 2009Q4

REPORT INFORMATION
  Report Type: 
  Country: None (occurrence: None)
  Receive Date: 20091022
  Receipt Date: 20091015
  Transmission Date: 20100525
  Serious: Yes (Hospitalization)
  Sender: FDA-Public Use
  Company Number: PHHO2009FR11141

PATIENT
  Sex: Male

DRUGS (1)
  1. RAD 666 RAD+TAB [Suspect]
     Indication: MANTLE CELL LYMPHOMA
     Dosage: 10 MG, QD
     Route: 048
     Dates: start: 20090806, end: 20090902

REACTIONS (1)
  - PULMONARY EMBOLISM [None]
